FAERS Safety Report 6188021-2 (Version None)
Quarter: 2009Q2

REPORT INFORMATION
  Report Type: 
  Country: None (occurrence: None)
  Receive Date: 20090513
  Receipt Date: 20090502
  Transmission Date: 20091009
  Serious: Yes (Hospitalization)
  Sender: FDA-Public Use
  Company Number: PHHY2009MX16754

PATIENT
  Age: 68 Year
  Sex: Female

DRUGS (4)
  1. ZELMAC [Suspect]
     Indication: IRRITABLE BOWEL SYNDROME
     Dosage: 1 TAB/DAY
     Route: 048
     Dates: start: 20071201
  2. FUROSEMIDE [Concomitant]
  3. OMEPRAZOL [Concomitant]
  4. FOLIC ACID [Concomitant]

REACTIONS (2)
  - ENCEPHALOPATHY [None]
  - HEPATIC CIRRHOSIS [None]
